FAERS Safety Report 7729576-3 (Version None)
Quarter: 2011Q3

REPORT INFORMATION
  Report Type: 
  Country: None (occurrence: None)
  Receive Date: 20110906
  Receipt Date: 20110823
  Transmission Date: 20111222
  Serious: No
  Sender: FDA-Public Use
  Company Number: US-JNJFOC-20110706796

PATIENT
  Sex: Female
  Weight: 93.44 kg

DRUGS (9)
  1. METFORMIN HCL [Concomitant]
     Indication: POLYCYSTIC OVARIES
     Route: 048
     Dates: start: 20030101
  2. FLONASE [Concomitant]
     Indication: SECRETION DISCHARGE
     Route: 045
  3. VOLTAREN [Concomitant]
     Indication: ARTHRITIS
     Route: 048
     Dates: start: 20080101
  4. PRILOSEC [Concomitant]
     Indication: GASTROOESOPHAGEAL REFLUX DISEASE
     Route: 048
  5. BACLOFEN [Concomitant]
     Indication: MUSCLE RELAXANT THERAPY
     Route: 048
     Dates: start: 20090101
  6. CELEXA [Concomitant]
     Indication: DEPRESSION
     Route: 048
     Dates: start: 20080101
  7. DURAGESIC-100 [Suspect]
     Indication: BACK PAIN
     Route: 062
     Dates: start: 20100701
  8. DURAGESIC-100 [Suspect]
     Route: 062
     Dates: start: 20100101
  9. TRILEPTAL [Concomitant]
     Indication: BIPOLAR DISORDER
     Route: 048
     Dates: start: 20020101

REACTIONS (5)
  - PAIN [None]
  - WRONG TECHNIQUE IN DRUG USAGE PROCESS [None]
  - WITHDRAWAL SYNDROME [None]
  - PRODUCT QUALITY ISSUE [None]
  - PRODUCT ADHESION ISSUE [None]
